FAERS Safety Report 19428312 (Version 3)
Quarter: 2021Q3

REPORT INFORMATION
  Report Type: Report from Study
  Country: None (occurrence: US)
  Receive Date: 20210616
  Receipt Date: 20210806
  Transmission Date: 20211014
  Serious: Yes (Other)
  Sender: FDA-Public Use
  Company Number: US-ABBVIE-21K-163-3937674-00

PATIENT
  Sex: Female

DRUGS (1)
  1. HUMIRA [Suspect]
     Active Substance: ADALIMUMAB
     Indication: CROHN^S DISEASE
     Dosage: CITRATE FREE
     Route: 058

REACTIONS (6)
  - Colostomy [Not Recovered/Not Resolved]
  - Weight increased [Unknown]
  - Ovarian mass [Not Recovered/Not Resolved]
  - Nervous system disorder [Unknown]
  - Gait disturbance [Unknown]
  - Back pain [Unknown]
